FAERS Safety Report 15306847 (Version 3)
Quarter: 2018Q4

REPORT INFORMATION
  Report Type: Spontaneous
  Country: US (occurrence: US)
  Receive Date: 20180822
  Receipt Date: 20181214
  Transmission Date: 20190204
  Serious: Yes (Other)
  Sender: FDA-Public Use
  Company Number: US-PFIZER INC-2018333425

PATIENT
  Age: 30 Year
  Sex: Male

DRUGS (4)
  1. DEXTROAMPHETAMINE /00016601/ [Suspect]
     Active Substance: DEXTROAMPHETAMINE
     Dosage: UNK (IN THERAPEUTIC DOSES)
  2. ADDERALL [Suspect]
     Active Substance: AMPHETAMINE ASPARTATE\AMPHETAMINE SULFATE\DEXTROAMPHETAMINE SACCHARATE\DEXTROAMPHETAMINE SULFATE
     Indication: CENTRAL NERVOUS SYSTEM STIMULATION
     Dosage: UNK (100 MG DAILY OR 150-200 MG TWO-THREE DAYS A WEEK)
  3. COCAINE [Suspect]
     Active Substance: COCAINE
     Indication: CENTRAL NERVOUS SYSTEM STIMULATION
     Dosage: UNK,(UPTO 1 GRAM)
  4. METHYLPHENIDATE HYDROCHLORIDE. [Suspect]
     Active Substance: METHYLPHENIDATE HYDROCHLORIDE
     Dosage: UNK (IN THERAPEUTIC DOSES)

REACTIONS (3)
  - Erectile dysfunction [Unknown]
  - Depression [Unknown]
  - Suicidal ideation [Unknown]
